FAERS Safety Report 7568271-0 (Version None)
Quarter: 2011Q2

REPORT INFORMATION
  Report Type: 
  Country: None (occurrence: None)
  Receive Date: 20110617
  Receipt Date: 20110606
  Transmission Date: 20111010
  Serious: Yes (Death, Hospitalization)
  Sender: FDA-Public Use
  Company Number: 2011001810

PATIENT
  Age: 56 Year
  Sex: Female
  Weight: 65 kg

DRUGS (12)
  1. SORAFENIB (SORAFENIB) [Suspect]
     Indication: GALLBLADDER CANCER
     Dosage: 400 MG, BID, ORAL
     Route: 048
     Dates: start: 20110331, end: 20110411
  2. NEURONTIN [Concomitant]
  3. COLACE (DOCUSATE SODIUM) [Concomitant]
  4. ZOFRAN [Concomitant]
  5. METOPROLOL TARTRATE [Concomitant]
  6. DECADRON [Suspect]
     Indication: PAIN
  7. ALBUTEROL [Concomitant]
  8. DILAUDID [Concomitant]
  9. ASPIRIN [Concomitant]
  10. TARCEVA [Suspect]
     Indication: GALLBLADDER CANCER
     Dosage: 100 MG, UID/QD, ORAL
     Route: 048
     Dates: start: 20110331, end: 20110410
  11. FENTANYL [Concomitant]
  12. ATIVAN [Concomitant]

REACTIONS (23)
  - LETHARGY [None]
  - ABDOMINAL PAIN [None]
  - BLOOD LACTATE DEHYDROGENASE INCREASED [None]
  - MUSCULAR WEAKNESS [None]
  - ALANINE AMINOTRANSFERASE INCREASED [None]
  - DYSPNOEA [None]
  - BLOOD BILIRUBIN INCREASED [None]
  - HYPOCALCAEMIA [None]
  - BLOOD ALKALINE PHOSPHATASE INCREASED [None]
  - ASTHENIA [None]
  - THROMBOCYTOPENIA [None]
  - FAECES DISCOLOURED [None]
  - RESTLESSNESS [None]
  - ASPARTATE AMINOTRANSFERASE INCREASED [None]
  - HYPONATRAEMIA [None]
  - BLOOD PHOSPHORUS DECREASED [None]
  - CONFUSIONAL STATE [None]
  - TACHYCARDIA [None]
  - GASTRIC PERFORATION [None]
  - NAUSEA [None]
  - HYPERHIDROSIS [None]
  - BLOOD ALBUMIN DECREASED [None]
  - ANAEMIA [None]
